FAERS Safety Report 21382696 (Version 1)
Quarter: 2022Q3

REPORT INFORMATION
  Report Type: Spontaneous
  Country: PT (occurrence: PT)
  Receive Date: 20220927
  Receipt Date: 20220927
  Transmission Date: 20221027
  Serious: Yes (Other)
  Sender: FDA-Public Use
  Company Number: None

PATIENT
  Age: 55 Year
  Sex: Male

DRUGS (2)
  1. AMOXICILLIN\CLAVULANIC ACID [Suspect]
     Active Substance: AMOXICILLIN\CLAVULANIC ACID
     Indication: Respiratory tract infection
     Dosage: AMOXICILINA + ACIDO CLAVULANICO , THERAPY END DATE : NASK
     Route: 065
     Dates: start: 201712
  2. Lisinopril + Hydrocorothiazide [Concomitant]
     Indication: Product used for unknown indication
     Dosage: LISINOPRIL + HIDROCOROTIAZIDA 20MG + 12.5MG

REACTIONS (3)
  - Rash maculo-papular [Recovered/Resolved]
  - Rash pruritic [Recovered/Resolved]
  - Rash [Recovered/Resolved]

NARRATIVE: CASE EVENT DATE: 20171201
